FAERS Safety Report 6146899-2 (Version None)
Quarter: 2009Q2

REPORT INFORMATION
  Report Type: 
  Country: None (occurrence: None)
  Receive Date: 20090407
  Receipt Date: 20090403
  Transmission Date: 20091009
  Serious: Yes (Hospitalization, Other)
  Sender: FDA-Public Use
  Company Number: CA-ROXANE LABORATORIES, INC.-2009-RO-00333RO

PATIENT
  Age: 52 Year
  Sex: Male

DRUGS (18)
  1. MORPHINE [Suspect]
     Indication: DEPRESSION
     Dosage: 30MG
  2. MORPHINE [Suspect]
  3. MORPHINE [Suspect]
  4. MORPHINE [Suspect]
  5. RAMIPRIL [Suspect]
     Indication: HYPERTENSION
     Dosage: 5MG
  6. LORAZEPAM [Suspect]
  7. DIAZEPAM [Suspect]
  8. CITALOPRAM HYDROBROMIDE [Suspect]
  9. ROXICET [Suspect]
  10. ESCITALOPRAM [Suspect]
     Indication: DEPRESSION
     Dosage: 10MG
  11. ESCITALOPRAM [Suspect]
  12. ZOPICLONE [Suspect]
     Indication: DEPRESSION
     Dosage: 15MG
  13. ZOPICLONE [Suspect]
  14. OXYCODONE HCL [Suspect]
  15. OXYCODONE HCL [Suspect]
  16. CALCIUM GLUCONATE [Concomitant]
     Indication: HYPERKALAEMIA
  17. INSULIN [Concomitant]
     Indication: HYPERKALAEMIA
  18. SODIUM POLYSTYRENE SULPHONATE [Concomitant]
     Indication: HYPERKALAEMIA

REACTIONS (4)
  - ELECTROCARDIOGRAM QT PROLONGED [None]
  - HYPERKALAEMIA [None]
  - OVERDOSE [None]
  - SINUS TACHYCARDIA [None]
